FAERS Safety Report 6405536-X (Version None)
Quarter: 2009Q4

REPORT INFORMATION
  Report Type: 
  Country: None (occurrence: None)
  Receive Date: 20091014
  Receipt Date: 20091005
  Transmission Date: 20100525
  Serious: Yes (Hospitalization)
  Sender: FDA-Public Use
  Company Number: JPI-P-008779

PATIENT
  Age: 29 Year
  Sex: Female

DRUGS (4)
  1. XYREM [Suspect]
     Indication: FIBROMYALGIA
     Dosage: 4.5 GM (2.25 GM,2 IN 1 D),ORAL;  9 GM (4.5 GM,2 IN 1 D),ORAL
     Route: 048
     Dates: start: 20090101, end: 20090101
  2. XYREM [Suspect]
     Indication: INSOMNIA
     Dosage: 4.5 GM (2.25 GM,2 IN 1 D),ORAL;  9 GM (4.5 GM,2 IN 1 D),ORAL
     Route: 048
     Dates: start: 20090101, end: 20090101
  3. XYREM [Suspect]
     Indication: FIBROMYALGIA
     Dosage: 4.5 GM (2.25 GM,2 IN 1 D),ORAL;  9 GM (4.5 GM,2 IN 1 D),ORAL
     Route: 048
     Dates: start: 20090805
  4. XYREM [Suspect]
     Indication: INSOMNIA
     Dosage: 4.5 GM (2.25 GM,2 IN 1 D),ORAL;  9 GM (4.5 GM,2 IN 1 D),ORAL
     Route: 048
     Dates: start: 20090805

REACTIONS (1)
  - MANIA [None]
